FAERS Safety Report 10741497 (Version 2)
Quarter: 2015Q1

REPORT INFORMATION
  Report Type: Spontaneous
  Country: US (occurrence: US)
  Receive Date: 20150127
  Receipt Date: 20150218
  Transmission Date: 20150721
  Serious: Yes (Hospitalization)
  Sender: FDA-Public Use
  Company Number: US-JNJFOC-20150109986

PATIENT
  Age: 48 Year
  Sex: Female

DRUGS (3)
  1. PARACETAMOL [Suspect]
     Active Substance: ACETAMINOPHEN
     Indication: PRODUCT USED FOR UNKNOWN INDICATION
     Route: 048
  2. TRAMADOL [Suspect]
     Active Substance: TRAMADOL
     Indication: PRODUCT USED FOR UNKNOWN INDICATION
     Route: 048
  3. PARACETAMOL [Suspect]
     Active Substance: ACETAMINOPHEN
     Route: 048

REACTIONS (10)
  - Respiratory depression [Recovered/Resolved]
  - Intentional overdose [Recovered/Resolved]
  - International normalised ratio increased [Recovering/Resolving]
  - Pyrexia [Unknown]
  - Liver function test abnormal [Recovering/Resolving]
  - Jaundice [Recovered/Resolved]
  - Abdominal pain upper [Unknown]
  - Depressed level of consciousness [Recovered/Resolved]
  - Suicide attempt [Unknown]
  - Diarrhoea [Unknown]

NARRATIVE: CASE EVENT DATE: 201202
